FAERS Safety Report 5347880-3 (Version None)
Quarter: 2007Q2

REPORT INFORMATION
  Report Type: 
  Country: None (occurrence: None)
  Receive Date: 20070606
  Receipt Date: 20070529
  Transmission Date: 20071010
  Serious: Yes (Other)
  Sender: FDA-Public Use
  Company Number: BR-ASTRAZENECA-2007UW13401

PATIENT
  Age: 58 Year
  Sex: Female
  Weight: 74 kg

DRUGS (5)
  1. ATENOL [Suspect]
     Indication: ANGINA PECTORIS
     Route: 048
     Dates: end: 20070302
  2. SELOZOK [Suspect]
     Indication: ANGINA PECTORIS
     Route: 048
     Dates: start: 20070303, end: 20070525
  3. ATROVENT [Concomitant]
  4. APRESOLINA [Concomitant]
  5. MANIVASC [Concomitant]

REACTIONS (6)
  - CHEST PAIN [None]
  - DIZZINESS [None]
  - DYSPNOEA [None]
  - HEADACHE [None]
  - OSTEOPOROSIS [None]
  - TREMOR [None]
